FAERS Safety Report 4576632-7 (Version None)
Quarter: 2005Q1

REPORT INFORMATION
  Report Type: 
  Country: None (occurrence: None)
  Receive Date: 20050127
  Receipt Date: 20041005
  Transmission Date: 20050727
  Serious: No
  Sender: FDA-Public Use
  Company Number: USA041080225

PATIENT
  Age: 7 Year
  Sex: Male
  Weight: 31 kg

DRUGS (3)
  1. STRATTERA [Suspect]
     Indication: ATTENTION DEFICIT/HYPERACTIVITY DISORDER
     Dosage: 40 MG DAY
     Dates: start: 20031116
  2. BENADRYL [Concomitant]
  3. ADVIL [Concomitant]

REACTIONS (3)
  - COLD SWEAT [None]
  - CYANOSIS [None]
  - FEELING COLD [None]
